FAERS Safety Report 7108616-9 (Version None)
Quarter: 2010Q4

REPORT INFORMATION
  Report Type: 
  Country: None (occurrence: None)
  Receive Date: 20101117
  Receipt Date: 20101109
  Transmission Date: 20110411
  Serious: Yes (Death, Life-Threatening, Hospitalization)
  Sender: FDA-Public Use
  Company Number: DE-ROCHE-680662

PATIENT
  Sex: Male
  Weight: 67 kg

DRUGS (11)
  1. CAPECITABINE [Suspect]
     Indication: RECTAL CANCER
     Dosage: MOST RECENT DOSE BEFORE SAE: 11 JAN 2010, BID ON DAY 1 AND DAY 15 OF 3 WEEK CYCLE.
     Route: 048
     Dates: start: 20090831
  2. OXALIPLATIN [Suspect]
     Indication: RECTAL CANCER
     Dosage: MOST RECENT DOSE BEFORE SAE: 11 JAN 2010, FREQUENCY: ON DAY 1 OF 3 WEEK CYCLE.
     Route: 042
     Dates: start: 20090831
  3. METAMIZOL [Concomitant]
     Indication: PAIN
     Dosage: SCHEDULE: 40- 40 -40- 40 DROPS.
     Route: 048
     Dates: start: 20091221
  4. ZOLPIDEMTARTRAT [Concomitant]
     Indication: INSOMNIA
     Route: 048
     Dates: start: 20091221
  5. TAMSULOSIN [Concomitant]
     Indication: MICTURITION DISORDER
     Route: 048
     Dates: start: 20090821
  6. MELPERON [Concomitant]
     Indication: INSOMNIA
     Route: 048
     Dates: start: 20100119
  7. CITALOPRAM HYDROBROMIDE [Concomitant]
     Route: 048
     Dates: start: 20100119
  8. CLYSTER [Concomitant]
     Dates: start: 20091201
  9. IMODIUM [Concomitant]
     Route: 048
     Dates: start: 20090101, end: 20101105
  10. GLIMEPIRID [Concomitant]
     Indication: DIABETES MELLITUS
     Dates: end: 20101105
  11. OPIUM [Concomitant]

REACTIONS (7)
  - COMPLETED SUICIDE [None]
  - DEPRESSION SUICIDAL [None]
  - DIARRHOEA [None]
  - HIDRADENITIS [None]
  - INTESTINAL ANASTOMOSIS COMPLICATION [None]
  - MAJOR DEPRESSION [None]
  - MUCOSAL INFLAMMATION [None]
